FAERS Safety Report 5218471-X (Version None)
Quarter: 2007Q1

REPORT INFORMATION
  Report Type: 
  Country: None (occurrence: None)
  Receive Date: 20070122
  Receipt Date: 20070104
  Transmission Date: 20070707
  Serious: Yes (Other)
  Sender: FDA-Public Use
  Company Number: PAR_1243_2007

PATIENT
  Sex: 0

DRUGS (1)
  1. CABERGOLINE [Suspect]
     Dosage: DF

REACTIONS (9)
  - AORTIC VALVE INCOMPETENCE [None]
  - ARRHYTHMIA [None]
  - CARDIAC VALVE DISEASE [None]
  - CHEST PAIN [None]
  - DYSPNOEA [None]
  - MITRAL VALVE INCOMPETENCE [None]
  - OEDEMA [None]
  - SYNCOPE [None]
  - TRICUSPID VALVE INCOMPETENCE [None]
